FAERS Safety Report 9421796 (Version 2)
Quarter: 2014Q1

REPORT INFORMATION
  Report Type: Report from Study
  Country: TW (occurrence: TW)
  Receive Date: 20130726
  Receipt Date: 20140115
  Transmission Date: 20141002
  Serious: Yes (Hospitalization)
  Sender: FDA-Public Use
  Company Number: TW-SHIRE-ALL1-2013-05021

PATIENT
  Age: 28 Year
  Sex: Male
  Weight: 42.3 kg

DRUGS (9)
  1. IDURSULFASE [Suspect]
     Indication: MUCOPOLYSACCHARIDOSIS II
     Dosage: 24 MG, UNKNOWN
     Route: 041
     Dates: start: 20090716
  2. ALLERMIN                           /00495202/ [Concomitant]
     Indication: PREMEDICATION
     Dosage: 5 MG, UNKNOWN
     Route: 030
     Dates: start: 20090716
  3. CYPROHEPTADINE HCL [Concomitant]
     Indication: SLEEP DISORDER
     Dosage: 4 MG, 4X/DAY:QID
     Route: 048
     Dates: start: 20100211
  4. NEOMYCIN SULFATE [Concomitant]
     Indication: SLEEP DISORDER
     Dosage: 1 DF, 2X/DAY:BID
     Route: 048
     Dates: start: 20091202
  5. SALBUTAMOL [Concomitant]
     Indication: RESPIRATORY DISORDER
     Dosage: 1 MG, AS REQ^D
     Route: 048
     Dates: start: 20090716
  6. BISOLVON [Concomitant]
     Indication: RESPIRATORY DISORDER
     Dosage: 1 DF, 4X/DAY:QID
     Route: 048
     Dates: start: 20090702
  7. MEPTIN [Concomitant]
     Indication: RESPIRATORY DISORDER
     Dosage: 25 MG, 1X/DAY:QD (HS)
     Route: 048
     Dates: start: 20090420
  8. SPIRONOLACTONE [Concomitant]
     Indication: CARDIOVASCULAR DISORDER
     Dosage: 12.5 MG, 2X/DAY:BID
     Route: 048
     Dates: start: 20090420
  9. FUROSEMIDE [Concomitant]
     Indication: CARDIOVASCULAR DISORDER
     Dosage: 10 MG, 2X/DAY:BID
     Route: 048
     Dates: start: 20090409

REACTIONS (1)
  - Inguinal hernia [Recovered/Resolved]
